FAERS Safety Report 4838877-8 (Version None)
Quarter: 2005Q4

REPORT INFORMATION
  Report Type: 
  Country: None (occurrence: None)
  Receive Date: 20051129
  Receipt Date: 20050525
  Transmission Date: 20060501
  Serious: Yes (Other)
  Sender: FDA-Public Use
  Company Number: PHBS2005NZ07551

PATIENT
  Age: 41 Year
  Sex: Male

DRUGS (5)
  1. OLANZAPINE [Concomitant]
     Dosage: 20 MG/D
     Dates: start: 20050516
  2. OLANZAPINE [Concomitant]
     Dosage: 10 MG/D
  3. PREDNISONE [Concomitant]
     Indication: DERMATOMYOSITIS
  4. CLOZARIL [Suspect]
     Indication: SCHIZOPHRENIA, PARANOID TYPE
     Dosage: 175 MG/D
     Route: 048
     Dates: start: 20050516, end: 20050526
  5. CLOZARIL [Suspect]

REACTIONS (6)
  - BLOOD CREATINE PHOSPHOKINASE INCREASED [None]
  - BLOOD CREATINE PHOSPHOKINASE MM [None]
  - CONSTIPATION [None]
  - DERMATOMYOSITIS [None]
  - MUSCLE RIGIDITY [None]
  - MUSCULAR WEAKNESS [None]
